FAERS Safety Report 8024131-2 (Version None)
Quarter: 2012Q1

REPORT INFORMATION
  Report Type: 
  Country: None (occurrence: None)
  Receive Date: 20120105
  Receipt Date: 20111228
  Transmission Date: 20120608
  Serious: Yes (Hospitalization)
  Sender: FDA-Public Use
  Company Number: US-ASTELLAS-2011US008105

PATIENT

DRUGS (7)
  1. ZINC SULFATE [Concomitant]
     Indication: MINERAL SUPPLEMENTATION
     Dosage: 300 MG, UID/QD
     Route: 048
  2. ASPIRIN [Concomitant]
     Indication: CARDIAC DISORDER
     Dosage: 81 MG, UID/QD
     Route: 048
  3. PROGRAF [Suspect]
     Indication: LIVER TRANSPLANT
     Dosage: 3 MG, BID
     Route: 048
     Dates: start: 20090423
  4. FENADINE [Concomitant]
     Indication: DYSPEPSIA
     Dosage: 20 MG, UID/QD
     Route: 048
  5. URSODIOL [Concomitant]
     Indication: HEPATOBILIARY DISEASE
     Dosage: 300 MG, BID
     Route: 048
  6. MYCOPHENOLATE MOFETIL (CELLCEPT) [Concomitant]
     Indication: LIVER TRANSPLANT
     Dosage: 250 MG, UID/QD
     Route: 048
  7. SYNTHROID [Concomitant]
     Indication: THYROID DISORDER
     Dosage: 75 MG, UID/QD
     Route: 048

REACTIONS (2)
  - CHOLESTASIS [None]
  - ANASTOMOTIC STENOSIS [None]
